FAERS Safety Report 9238813 (Version 2)
Quarter: 2013Q4

REPORT INFORMATION
  Report Type: Report from Study
  Country: CA (occurrence: CA)
  Receive Date: 20130418
  Receipt Date: 20131128
  Transmission Date: 20140711
  Serious: Yes (Hospitalization)
  Sender: FDA-Public Use
  Company Number: CA-ROCHE-1215453

PATIENT
  Age: 64 Year
  Sex: Male

DRUGS (16)
  1. LUCENTIS [Suspect]
     Indication: DIABETIC RETINAL OEDEMA
     Route: 050
  2. LUCENTIS [Suspect]
     Dosage: RECENT DOSE TAKEN ON 19/MAR/2013
     Route: 050
  3. METFORMIN HYDROCHLORIDE [Concomitant]
     Route: 065
  4. GLIBENCLAMIDE/METFORMIN HYDROCHLORIDE [Concomitant]
     Route: 065
  5. CRESTOR [Concomitant]
  6. EMTEC-30 [Concomitant]
  7. DOCUSATE SODIUM [Concomitant]
  8. ACCURETIC [Concomitant]
  9. VICTOZA [Concomitant]
  10. TERAZOSIN [Concomitant]
  11. ACCUPRIL [Concomitant]
  12. AMLODIPINE [Concomitant]
  13. ASA [Concomitant]
  14. PIOGLITAZONE [Concomitant]
  15. GLYBURIDE [Concomitant]
  16. INEXIUM [Concomitant]

REACTIONS (2)
  - Bacterial infection [Unknown]
  - Heart rate abnormal [Unknown]
